FAERS Safety Report 12958110 (Version 2)
Quarter: 2016Q4

REPORT INFORMATION
  Report Type: Spontaneous
  Country: JP (occurrence: JP)
  Receive Date: 20161120
  Receipt Date: 20161230
  Transmission Date: 20170207
  Serious: Yes (Other)
  Sender: FDA-Public Use
  Company Number: JP-ROCHE-1856159

PATIENT
  Sex: Female

DRUGS (4)
  1. PACLITAXEL. [Suspect]
     Active Substance: PACLITAXEL
     Indication: BREAST CANCER
     Route: 041
     Dates: end: 20160829
  2. HERCEPTIN [Suspect]
     Active Substance: TRASTUZUMAB
     Indication: BREAST CANCER
     Route: 041
     Dates: end: 20160829
  3. HERCEPTIN [Suspect]
     Active Substance: TRASTUZUMAB
     Route: 041
     Dates: start: 20161114
  4. PERJETA [Suspect]
     Active Substance: PERTUZUMAB
     Indication: BREAST CANCER
     Dosage: STRENGTH: 420 MG/ 14ML
     Route: 041
     Dates: end: 20160829

REACTIONS (1)
  - Bone marrow failure [Recovered/Resolved]
